FAERS Safety Report 10331800 (Version 3)
Quarter: 2017Q3

REPORT INFORMATION
  Report Type: Spontaneous
  Country: US (occurrence: US)
  Receive Date: 20140722
  Receipt Date: 20170919
  Transmission Date: 20171127
  Serious: Yes (Hospitalization)
  Sender: FDA-Public Use
  Company Number: US-BAYER-2014-107316

PATIENT
  Sex: Female

DRUGS (4)
  1. ADVIL [Concomitant]
     Active Substance: IBUPROFEN
  2. TYLENOL [Concomitant]
     Active Substance: ACETAMINOPHEN
  3. MIRENA [Suspect]
     Active Substance: LEVONORGESTREL
     Indication: CONTRACEPTION
     Dosage: 20 MCG/24HR, CONT
     Route: 015
     Dates: start: 20130124, end: 20130905
  4. IBUPROFEN. [Concomitant]
     Active Substance: IBUPROFEN

REACTIONS (8)
  - Procedural pain [Not Recovered/Not Resolved]
  - Injury [None]
  - Device issue [None]
  - Medical device pain [None]
  - Pain [Not Recovered/Not Resolved]
  - Uterine perforation [None]
  - Post procedural discomfort [Not Recovered/Not Resolved]
  - Genital haemorrhage [None]

NARRATIVE: CASE EVENT DATE: 2013
